FAERS Safety Report 7282982-6 (Version None)
Quarter: 2011Q1

REPORT INFORMATION
  Report Type: 
  Country: None (occurrence: None)
  Receive Date: 20110209
  Receipt Date: 20110128
  Transmission Date: 20110831
  Serious: Yes (Other)
  Sender: FDA-Public Use
  Company Number: JP-JNJFOC-20100900112

PATIENT
  Age: 49 Year
  Sex: Male

DRUGS (8)
  1. REMICADE [Suspect]
     Indication: CROHN'S DISEASE
     Dosage: 4 DOSES ADMINISTERED
     Route: 042
  2. REMICADE [Suspect]
     Dosage: 4 DOSES ADMINISTERED
     Route: 042
  3. REMICADE [Suspect]
     Dosage: 4 DOSES ADMINISTERED
     Route: 042
  4. REMICADE [Suspect]
     Dosage: 4 DOSES ADMINISTERED
     Route: 042
  5. REMICADE [Suspect]
     Dosage: 4 DOSES ADMINISTERED
     Route: 042
  6. REMICADE [Suspect]
     Dosage: 4 DOSES ADMINISTERED
     Route: 042
  7. REMICADE [Suspect]
     Dosage: 4 DOSES ADMINISTERED
     Route: 042
  8. REMICADE [Suspect]
     Route: 042

REACTIONS (1)
  - LUPUS-LIKE SYNDROME [None]
